FAERS Safety Report 24159715 (Version 2)
Quarter: 2024Q3

REPORT INFORMATION
  Report Type: Report from Study
  Country: ZA (occurrence: ZA)
  Receive Date: 20240731
  Receipt Date: 20240802
  Transmission Date: 20241016
  Serious: Yes (Death, Hospitalization)
  Sender: ABBVIE
  Company Number: ZA-ABBVIE-5860559

PATIENT
  Age: 34 Year
  Sex: Female

DRUGS (3)
  1. BOTOX [Suspect]
     Active Substance: ONABOTULINUMTOXINA
     Indication: Cerebral palsy
     Dosage: TIME INTERVAL: AS NECESSARY: A TOTAL DOSE OF 300U (100U+200U), FORM STRENGTH: 100 IU (INTERNATION...
     Route: 065
     Dates: start: 20240716, end: 20240716
  2. BOTOX [Suspect]
     Active Substance: ONABOTULINUMTOXINA
     Indication: Cerebral palsy
     Dosage: TIME INTERVAL: AS NECESSARY: A TOTAL DOSE OF 300U (200U+100U), FORM STRENGTH: 200 IU (INTERNATION...
     Route: 065
     Dates: start: 20240716, end: 20240716
  3. MORPHINE [Suspect]
     Active Substance: MORPHINE
     Indication: Product used for unknown indication
     Route: 058
     Dates: start: 2024

REACTIONS (6)
  - Death [Fatal]
  - Cardiovascular disorder [Unknown]
  - Myocarditis [Unknown]
  - Hypotension [Unknown]
  - Pneumonia [Unknown]
  - Investigation abnormal [Unknown]

NARRATIVE: CASE EVENT DATE: 20240726
